FAERS Safety Report 7263548-0 (Version None)
Quarter: 2011Q1

REPORT INFORMATION
  Report Type: 
  Country: None (occurrence: None)
  Receive Date: 20110120
  Receipt Date: 20110103
  Transmission Date: 20110831
  Serious: No
  Sender: FDA-Public Use
  Company Number: 54973

PATIENT
  Age: 8 Month
  Sex: Male
  Weight: 9.9791 kg

DRUGS (1)
  1. HYLAND'S TEETHING TABLETS [Suspect]
     Indication: TEETHING
     Dosage: 2 TAB EVY HR;1 TABEVYHR

REACTIONS (5)
  - STOMATITIS [None]
  - ANURIA [None]
  - DIARRHOEA [None]
  - GINGIVITIS [None]
  - VOMITING [None]
